FAERS Safety Report 4385798-3 (Version None)
Quarter: 2004Q2

REPORT INFORMATION
  Report Type: 
  Country: None (occurrence: None)
  Receive Date: 20040623
  Receipt Date: 20040607
  Transmission Date: 20050107
  Serious: Yes (Hospitalization)
  Sender: FDA-Public Use
  Company Number: 2004AP03028

PATIENT
  Age: 28 Year
  Sex: Male

DRUGS (1)
  1. SEROQUEL [Suspect]
     Dates: start: 20040525, end: 20040525

REACTIONS (7)
  - ASTHENIA [None]
  - COMA [None]
  - DEPRESSED LEVEL OF CONSCIOUSNESS [None]
  - INTENTIONAL OVERDOSE [None]
  - MIOSIS [None]
  - PARALYSIS FLACCID [None]
  - SUICIDE ATTEMPT [None]
